FAERS Safety Report 13055864 (Version 1)
Quarter: 2016Q4

REPORT INFORMATION
  Report Type: Other
  Country: GB (occurrence: GB)
  Receive Date: 20161222
  Receipt Date: 20161222
  Transmission Date: 20170207
  Serious: Yes (Other)
  Sender: FDA-Public Use
  Company Number: GB-CELLTRION INC.-2016GB013747

PATIENT

DRUGS (1)
  1. REMSIMA [Suspect]
     Active Substance: INFLIXIMAB
     Indication: CROHN^S DISEASE
     Dosage: 650 MG, UNK
     Route: 042
     Dates: start: 20161128, end: 20161128

REACTIONS (8)
  - Disorganised speech [Recovering/Resolving]
  - Dyspnoea [Recovering/Resolving]
  - Paraesthesia [Recovering/Resolving]
  - Headache [Recovering/Resolving]
  - Feeling abnormal [Recovering/Resolving]
  - Palpitations [Recovering/Resolving]
  - Dizziness [Recovering/Resolving]
  - Product substitution issue [Unknown]

NARRATIVE: CASE EVENT DATE: 20161128
